FAERS Safety Report 22539478 (Version 1)
Quarter: 2023Q2

REPORT INFORMATION
  Report Type: Spontaneous
  Country: NL (occurrence: NL)
  Receive Date: 20230609
  Receipt Date: 20230609
  Transmission Date: 20230721
  Serious: Yes (Life-Threatening, Hospitalization, Other)
  Sender: FDA-Public Use
  Company Number: None

PATIENT
  Sex: Female
  Weight: 65 kg

DRUGS (14)
  1. CAPECITABINE [Suspect]
     Active Substance: CAPECITABINE
     Indication: Gastric cancer
     Dosage: 150 MG, Q12H
     Dates: start: 20230516, end: 20230521
  2. CAPECITABINE [Suspect]
     Active Substance: CAPECITABINE
     Dosage: 500 MG, Q8H
     Dates: start: 20230516, end: 20230521
  3. OXALIPLATIN [Suspect]
     Active Substance: OXALIPLATIN
     Indication: Gastric cancer
     Dosage: UNK
     Dates: start: 20230516, end: 20230521
  4. ROSUVASTATIN [Concomitant]
     Active Substance: ROSUVASTATIN
     Dosage: 10 MG, TABLET, 10 MG (MILLIGRAM)
  5. ASPIRIN [Concomitant]
     Active Substance: ASPIRIN
     Dosage: TABLET, 80 MG (MILLIGRAM)
  6. SPIRONOLACTONE [Concomitant]
     Active Substance: SPIRONOLACTONE
     Dosage: TABLET, 12,5 MG (MILLIGRAM)
  7. TELMISARTAN [Concomitant]
     Active Substance: TELMISARTAN
     Dosage: TABLET, 40 MG (MILLIGRAM)
  8. BISOPROLOL FUMARATE [Concomitant]
     Active Substance: BISOPROLOL FUMARATE
     Dosage: TABLET, 5 MG (MILLIGRAM)
  9. CALCIUMCARBONAT [Concomitant]
     Dosage: CHEWABLE TABLET , 1.25 G (GRAM)/800 UNITS
  10. BARNIDIPINE [Concomitant]
     Active Substance: BARNIDIPINE
     Dosage: MODIFIED-RELEASE CAPSULE, 10 MG (MILLIGRAMS)
  11. ONDANSETRON [Concomitant]
     Active Substance: ONDANSETRON
     Dosage: ORODISPERSIBLE TABLET, 8 MG (MILLIGRAMS)
  12. METOCLOPRAMIDE [Concomitant]
     Active Substance: METOCLOPRAMIDE
     Dosage: TABLET, 10 MG (MILLIGRAM)
  13. DEXAMETHASONE [Concomitant]
     Active Substance: DEXAMETHASONE
     Dosage: TABLET, 4 MG (MILLIGRAM)
  14. AMOXICILLIN\CLARITHROMYCIN\PANTOPRAZOLE [Concomitant]
     Active Substance: AMOXICILLIN\CLARITHROMYCIN\PANTOPRAZOLE
     Dosage: GASTRO-RESISTANT TABLET, 1000/500/40 MG

REACTIONS (1)
  - Posterior reversible encephalopathy syndrome [Recovering/Resolving]
